FAERS Safety Report 7025630-2 (Version None)
Quarter: 2010Q4

REPORT INFORMATION
  Report Type: 
  Country: None (occurrence: None)
  Receive Date: 20101004
  Receipt Date: 20100921
  Transmission Date: 20110411
  Serious: Yes (Other)
  Sender: FDA-Public Use
  Company Number: US-RANBAXY-2010US-38326

PATIENT

DRUGS (1)
  1. VERAPAMIL [Suspect]
     Indication: PRODUCT USED FOR UNKNOWN INDICATION
     Dosage: AS MUCH AS 1200 MG
     Route: 048

REACTIONS (2)
  - DRUG TOXICITY [None]
  - OVERDOSE [None]
